FAERS Safety Report 10471910 (Version 3)
Quarter: 2014Q4

REPORT INFORMATION
  Report Type: Spontaneous
  Country: US (occurrence: US)
  Receive Date: 20140924
  Receipt Date: 20141120
  Transmission Date: 20150528
  Serious: Yes (Hospitalization, Congenital Anomaly, Other)
  Sender: FDA-Public Use
  Company Number: US-JNJFOC-20140801976

PATIENT
  Age: 0 Day
  Sex: Male
  Weight: 2.64 kg

DRUGS (4)
  1. LABETALOL [Concomitant]
     Active Substance: LABETALOL\LABETALOL HYDROCHLORIDE
     Indication: HYPERTENSION
     Route: 064
  2. NICOTROL [Suspect]
     Active Substance: NICOTINE
     Indication: SMOKING CESSATION THERAPY
     Dosage: 4-12 CARTRIDGES A DAY
     Route: 064
     Dates: start: 20140114, end: 201401
  3. NICOTROL [Suspect]
     Active Substance: NICOTINE
     Indication: SMOKING CESSATION THERAPY
     Dosage: 4-12 CARTRIDGES A DAY
     Route: 064
     Dates: start: 201401, end: 20140121
  4. PRENATAL VITAMINS [Concomitant]
     Active Substance: VITAMINS
     Indication: ROUTINE HEALTH MAINTENANCE
     Route: 064
     Dates: start: 2013

REACTIONS (3)
  - Foetal cardiac disorder [Recovered/Resolved with Sequelae]
  - Low birth weight baby [Unknown]
  - Foetal exposure during pregnancy [Unknown]

NARRATIVE: CASE EVENT DATE: 20140514
